FAERS Safety Report 7611994-5 (Version None)
Quarter: 2011Q3

REPORT INFORMATION
  Report Type: 
  Country: None (occurrence: None)
  Receive Date: 20110715
  Receipt Date: 20110708
  Transmission Date: 20111222
  Serious: Yes (Hospitalization, Other)
  Sender: FDA-Public Use
  Company Number: GB-ELI_LILLY_AND_COMPANY-GB201010007081

PATIENT
  Sex: Female

DRUGS (1)
  1. GEMZAR [Suspect]
     Route: 042

REACTIONS (2)
  - LUNG DISORDER [None]
  - DYSPNOEA [None]
